FAERS Safety Report 7815662-6 (Version None)
Quarter: 2011Q4

REPORT INFORMATION
  Report Type: 
  Country: None (occurrence: None)
  Receive Date: 20111007
  Receipt Date: 20111004
  Transmission Date: 20120403
  Serious: Yes (Other)
  Sender: FDA-Public Use
  Company Number: 2011029977

PATIENT
  Sex: Female

DRUGS (2)
  1. HIZENTRA [Suspect]
     Indication: PRIMARY IMMUNODEFICIENCY SYNDROME
     Dosage: (50 ML  1X/WEEK SUBCUTANEOUS), (25 ML 1X/WEEK SUBCUTANEOUS)
     Route: 058
     Dates: start: 20110601
  2. SAVELLA [Concomitant]

REACTIONS (4)
  - INFUSION SITE HAEMORRHAGE [None]
  - CONTUSION [None]
  - RECTAL HAEMORRHAGE [None]
  - HAEMORRHOIDS [None]
